FAERS Safety Report 6047595-2 (Version None)
Quarter: 2009Q1

REPORT INFORMATION
  Report Type: 
  Country: None (occurrence: None)
  Receive Date: 20090123
  Receipt Date: 20090115
  Transmission Date: 20090719
  Serious: Yes (Death, Other)
  Sender: FDA-Public Use
  Company Number: GB-RANBAXY-2009RR-20584

PATIENT

DRUGS (2)
  1. METFORMIN [Suspect]
     Indication: GESTATIONAL DIABETES
     Dosage: 500 MG, BID
     Route: 064
     Dates: start: 20081008, end: 20081024
  2. LABETALOL HCL [Concomitant]
     Indication: PREGNANCY INDUCED HYPERTENSION
     Dosage: 200 MG, TID
     Route: 064

REACTIONS (1)
  - INTRA-UTERINE DEATH [None]
